FAERS Safety Report 8255890-1 (Version None)
Quarter: 2012Q2

REPORT INFORMATION
  Report Type: 
  Country: None (occurrence: None)
  Receive Date: 20120403
  Receipt Date: 20120328
  Transmission Date: 20120825
  Serious: Yes (Death)
  Sender: FDA-Public Use
  Company Number: JP-ROCHE-1043800

PATIENT
  Sex: Female

DRUGS (13)
  1. AMEZINIUM METILSULFATE [Concomitant]
     Dosage: AT HD
     Route: 048
     Dates: start: 20110402
  2. ZOLPIDEM [Concomitant]
     Indication: INSOMNIA
     Route: 048
  3. ASPIRIN [Concomitant]
     Route: 048
  4. LANSOPRAZOLE [Concomitant]
     Indication: GASTROOESOPHAGEAL REFLUX DISEASE
     Route: 048
  5. MIRCERA [Suspect]
     Route: 042
     Dates: start: 20111115, end: 20111213
  6. DIART [Concomitant]
     Dosage: 30-60MG
     Route: 048
  7. DOXAZOSIN MESYLATE [Concomitant]
     Indication: HYPERTENSION
     Route: 048
  8. MIRCERA [Suspect]
     Indication: NEPHROGENIC ANAEMIA
     Route: 042
     Dates: start: 20110913, end: 20111011
  9. MIRCERA [Suspect]
     Route: 042
     Dates: start: 20120110, end: 20120110
  10. AMEZINIUM METILSULFATE [Concomitant]
     Dosage: AT HD
     Route: 048
     Dates: end: 20110330
  11. CALCIUM CARBONATE [Concomitant]
     Indication: HYPERPHOSPHATAEMIA
     Route: 048
     Dates: start: 20110415
  12. PENLES [Concomitant]
     Indication: PROPHYLAXIS
     Dosage: AT HD
     Route: 061
  13. MIRCERA [Suspect]
     Route: 042
     Dates: start: 20120214, end: 20120214

REACTIONS (3)
  - ENTEROCOLITIS [None]
  - THALAMUS HAEMORRHAGE [None]
  - INTRAVENTRICULAR HAEMORRHAGE [None]
